FAERS Safety Report 9506614 (Version 1)
Quarter: 2013Q3

REPORT INFORMATION
  Report Type: Spontaneous
  Country: US (occurrence: None)
  Receive Date: 20130905
  Receipt Date: 20130905
  Transmission Date: 20140515
  Serious: Yes (Other)
  Sender: FDA-Public Use
  Company Number: None

PATIENT
  Sex: Female
  Weight: 94.1 kg

DRUGS (1)
  1. TYSABRI [Suspect]
     Dosage: 300MG/15ML EVERY 4 WEEKS IV
     Route: 042
     Dates: start: 20130726

REACTIONS (1)
  - Anaphylactic shock [None]
